FAERS Safety Report 7327025-0 (Version None)
Quarter: 2011Q1

REPORT INFORMATION
  Report Type: 
  Country: None (occurrence: None)
  Receive Date: 20110302
  Receipt Date: 20110221
  Transmission Date: 20110831
  Serious: Yes (Hospitalization)
  Sender: FDA-Public Use
  Company Number: IT-JNJFOC-20110207094

PATIENT
  Age: 21 Year
  Sex: Female

DRUGS (2)
  1. ASACOL [Concomitant]
     Indication: COLITIS ULCERATIVE
     Route: 048
  2. REMICADE [Suspect]
     Indication: COLITIS ULCERATIVE
     Route: 042

REACTIONS (3)
  - ILEOSTOMY [None]
  - DRUG RESISTANCE [None]
  - PROCTOCOLECTOMY [None]
